FAERS Safety Report 4854503-6 (Version None)
Quarter: 2005Q4

REPORT INFORMATION
  Report Type: 
  Country: None (occurrence: None)
  Receive Date: 20051215
  Receipt Date: 20051206
  Transmission Date: 20060501
  Serious: Yes (Hospitalization)
  Sender: FDA-Public Use
  Company Number: 2005AP06333

PATIENT
  Age: 73 Year
  Sex: Female

DRUGS (4)
  1. OMEPRAL [Suspect]
     Indication: GASTRIC ULCER
     Route: 048
     Dates: start: 20051122, end: 20051205
  2. OMEPRAL [Suspect]
     Route: 042
     Dates: start: 20051113, end: 20051121
  3. EVISTA [Concomitant]
     Route: 048
  4. BENET [Concomitant]
     Route: 048

REACTIONS (1)
  - INTERSTITIAL LUNG DISEASE [None]
